FAERS Safety Report 19612287 (Version 1)
Quarter: 2021Q3

REPORT INFORMATION
  Report Type: Spontaneous
  Country: DE (occurrence: DE)
  Receive Date: 20210726
  Receipt Date: 20210726
  Transmission Date: 20211014
  Serious: Yes (Other)
  Sender: FDA-Public Use
  Company Number: NVSC2021DE157307

PATIENT
  Age: 28 Year
  Sex: Male

DRUGS (13)
  1. OLANZAPINE. [Suspect]
     Active Substance: OLANZAPINE
     Indication: PRODUCT USED FOR UNKNOWN INDICATION
     Dosage: 5 MG, QD
     Route: 065
     Dates: start: 20200817, end: 20200817
  2. OLANZAPINE. [Suspect]
     Active Substance: OLANZAPINE
     Dosage: 10 MG, QD
     Route: 065
     Dates: start: 20200824, end: 20200825
  3. OLANZAPINE. [Suspect]
     Active Substance: OLANZAPINE
     Dosage: 10 MG, QD
     Route: 065
     Dates: start: 20200901, end: 20200902
  4. RISPERIDONE. [Suspect]
     Active Substance: RISPERIDONE
     Dosage: 2 MG, QD
     Route: 065
     Dates: start: 20200820, end: 20200820
  5. RISPERIDONE. [Suspect]
     Active Substance: RISPERIDONE
     Dosage: 3 MG, QD
     Route: 065
     Dates: start: 20200801, end: 20200804
  6. RISPERIDONE. [Suspect]
     Active Substance: RISPERIDONE
     Dosage: 4 MG, QD
     Route: 065
     Dates: start: 20200805, end: 20200810
  7. RISPERIDONE. [Suspect]
     Active Substance: RISPERIDONE
     Dosage: 5 MG, QD (UAWS EREKTIONSST?RUNGEN UND JUCKREIZ)
     Route: 065
     Dates: start: 20200811, end: 20200816
  8. OLANZAPINE. [Suspect]
     Active Substance: OLANZAPINE
     Dosage: 7.5 MG, QD
     Route: 065
     Dates: start: 20200818, end: 20200823
  9. RISPERIDONE. [Suspect]
     Active Substance: RISPERIDONE
     Indication: PRODUCT USED FOR UNKNOWN INDICATION
     Dosage: 2 MG, QD
     Route: 065
     Dates: start: 20200729, end: 20200731
  10. OLANZAPINE. [Suspect]
     Active Substance: OLANZAPINE
     Dosage: 7.5 MG, QD
     Route: 065
     Dates: start: 20200903, end: 20200907
  11. OLANZAPINE. [Suspect]
     Active Substance: OLANZAPINE
     Dosage: 5 MG, QD
     Route: 065
     Dates: start: 20200908
  12. RISPERIDONE. [Suspect]
     Active Substance: RISPERIDONE
     Dosage: 3 MG, QD (AB HIER UAWS, ?BERLAPPENDE UMSTELLUNG AUF OLANZAPIN)
     Route: 065
     Dates: start: 20200817, end: 20200819
  13. OLANZAPINE. [Suspect]
     Active Substance: OLANZAPINE
     Dosage: 15 MG, QD
     Route: 065
     Dates: start: 20200826, end: 20200831

REACTIONS (7)
  - Sleep disorder [Unknown]
  - Erectile dysfunction [Unknown]
  - Pruritus [Unknown]
  - Confusional state [Unknown]
  - Restless legs syndrome [Recovering/Resolving]
  - Apathy [Unknown]
  - Musculoskeletal stiffness [Unknown]

NARRATIVE: CASE EVENT DATE: 20200813
